FAERS Safety Report 14656250 (Version 2)
Quarter: 2018Q2

REPORT INFORMATION
  Report Type: Report from Study
  Country: CA (occurrence: CA)
  Receive Date: 20180319
  Receipt Date: 20180530
  Transmission Date: 20180711
  Serious: Yes (Other)
  Sender: FDA-Public Use
  Company Number: CA-JNJFOC-20180318925

PATIENT
  Age: 42 Year
  Sex: Female
  Weight: 70 kg

DRUGS (2)
  1. STELARA [Suspect]
     Active Substance: USTEKINUMAB
     Indication: CROHN^S DISEASE
     Dosage: STRENGTH = 90 MG
     Route: 058
     Dates: start: 20170727
  2. STELARA [Suspect]
     Active Substance: USTEKINUMAB
     Indication: CROHN^S DISEASE
     Route: 058
     Dates: start: 20170704

REACTIONS (8)
  - Abdominal distension [Unknown]
  - Pneumonia [Not Recovered/Not Resolved]
  - Multiple allergies [Unknown]
  - Malaise [Not Recovered/Not Resolved]
  - Chest discomfort [Unknown]
  - Decreased immune responsiveness [Not Recovered/Not Resolved]
  - Pharyngitis streptococcal [Unknown]
  - Influenza like illness [Not Recovered/Not Resolved]

NARRATIVE: CASE EVENT DATE: 2018
